FAERS Safety Report 17675128 (Version 1)
Quarter: 2020Q2

REPORT INFORMATION
  Report Type: Spontaneous
  Country: US (occurrence: US)
  Receive Date: 20200416
  Receipt Date: 20200416
  Transmission Date: 20200714
  Serious: Yes (Life-Threatening, Hospitalization)
  Sender: FDA-Public Use
  Company Number: US-MYLANLABS-2020M1037713

PATIENT
  Age: 57 Year
  Sex: Male

DRUGS (3)
  1. SODIUM NITROPRUSSIDE. [Suspect]
     Active Substance: SODIUM NITROPRUSSIDE
     Indication: CARDIOGENIC SHOCK
     Dosage: INFUSION
     Route: 065
  2. FUROSEMIDE. [Suspect]
     Active Substance: FUROSEMIDE
     Indication: CARDIOGENIC SHOCK
     Dosage: INFUSION
     Route: 065
  3. MILRINONE [Suspect]
     Active Substance: MILRINONE
     Indication: CARDIOGENIC SHOCK
     Dosage: INFUSION
     Route: 065

REACTIONS (1)
  - Drug ineffective [Unknown]
